FAERS Safety Report 7545835-1 (Version None)
Quarter: 2011Q2

REPORT INFORMATION
  Report Type: 
  Country: None (occurrence: None)
  Receive Date: 20110614
  Receipt Date: 20110609
  Transmission Date: 20111010
  Serious: Yes (Death)
  Sender: FDA-Public Use
  Company Number: SA-PFIZER INC-2011125823

PATIENT
  Age: 75 Year
  Sex: Male

DRUGS (3)
  1. TIGECYCLINE [Suspect]
     Indication: KLEBSIELLA TEST POSITIVE
  2. MEROPENEM [Concomitant]
  3. AZITHROMYCIN [Concomitant]

REACTIONS (1)
  - DRUG RESISTANCE [None]
